FAERS Safety Report 17546479 (Version 1)
Quarter: 2020Q1

REPORT INFORMATION
  Report Type: Spontaneous
  Country: US (occurrence: US)
  Receive Date: 20200316
  Receipt Date: 20200316
  Transmission Date: 20200409
  Serious: No
  Sender: FDA-Public Use
  Company Number: None

PATIENT
  Age: 29 Year
  Sex: Female
  Weight: 74.7 kg

DRUGS (1)
  1. NEXPLANON [Suspect]
     Active Substance: ETONOGESTREL
     Indication: CONTRACEPTION
     Dosage: ?          OTHER FREQUENCY:3 YEAR IMPLANT;?
     Route: 059
     Dates: start: 20180321

REACTIONS (2)
  - Thrombophlebitis superficial [None]
  - Implantation complication [None]

NARRATIVE: CASE EVENT DATE: 20200302
